FAERS Safety Report 9520162 (Version 4)
Quarter: 2013Q4

REPORT INFORMATION
  Report Type: Spontaneous
  Country: US (occurrence: US)
  Receive Date: 20130912
  Receipt Date: 20131107
  Transmission Date: 20140711
  Serious: Yes (Hospitalization, Other)
  Sender: FDA-Public Use
  Company Number: US-009507513-1205USA00341

PATIENT
  Sex: Female
  Weight: 66 kg

DRUGS (14)
  1. FOSAMAX [Suspect]
     Indication: OSTEOPOROSIS
     Dosage: 70 MG, QW
     Route: 048
     Dates: end: 200807
  2. FOSAMAX PLUS D [Suspect]
     Indication: OSTEOPOROSIS
     Dosage: 70 MG, QW
     Route: 048
     Dates: end: 20080312
  3. RECLAST [Concomitant]
     Indication: OSTEOPOROSIS
     Dosage: UNK
     Dates: start: 2008, end: 2009
  4. SINGULAIR [Concomitant]
     Indication: ASTHMA
     Dosage: UNK
     Dates: start: 2000
  5. ALBUTEROL [Concomitant]
     Indication: ASTHMA
     Dosage: UNK, PRN
     Dates: start: 2000
  6. ADVAIR [Concomitant]
     Indication: ASTHMA
     Dosage: UNK
     Dates: start: 2000, end: 2006
  7. CALCIUM (UNSPECIFIED) [Concomitant]
     Dosage: 1200 MG, QD
     Dates: start: 1963
  8. VITAMINS (UNSPECIFIED) [Concomitant]
     Dosage: 1 DF, QD
     Dates: start: 1963
  9. CHOLECALCIFEROL [Concomitant]
     Dosage: 5000 IU, QD
     Dates: start: 1963
  10. MENATETRENONE [Concomitant]
     Dosage: 50 MICROGRAM, QD
     Dates: start: 1963
  11. ASCORBIC ACID [Concomitant]
     Dosage: 1000 MG, QD
     Dates: start: 1963
  12. OMEGA-3 MARINE TRIGLYCERIDES [Concomitant]
     Dosage: 1000 MG, QD
     Dates: start: 1963
  13. FORTEO [Concomitant]
     Indication: OSTEOPOROSIS
     Dosage: 20 MICROGRAM, QD
     Route: 058
     Dates: start: 20080312
  14. VITAMIN D (UNSPECIFIED) [Concomitant]
     Indication: OSTEOPOROSIS
     Dosage: UNK, BID

REACTIONS (18)
  - Femur fracture [Unknown]
  - Intramedullary rod insertion [Unknown]
  - Intramedullary rod insertion [Unknown]
  - Limb operation [Unknown]
  - Removal of internal fixation [Unknown]
  - Fracture nonunion [Unknown]
  - Thyroid disorder [Unknown]
  - Hyperthyroidism [Unknown]
  - Secondary hypothyroidism [Unknown]
  - Abdominal hernia repair [Unknown]
  - Tonsillectomy [Unknown]
  - High frequency ablation [Unknown]
  - Female sterilisation [Unknown]
  - Osteopenia [Unknown]
  - Carpal tunnel decompression [Unknown]
  - Appendicectomy [Unknown]
  - Hyperlipidaemia [Unknown]
  - Device failure [Unknown]
